FAERS Safety Report 13001111 (Version 1)
Quarter: 2016Q4

REPORT INFORMATION
  Report Type: Spontaneous
  Country: US (occurrence: US)
  Receive Date: 20161206
  Receipt Date: 20161206
  Transmission Date: 20170207
  Serious: Yes (Congenital Anomaly)
  Sender: FDA-Public Use
  Company Number: US-CIPLA LTD.-2016US22579

PATIENT

DRUGS (2)
  1. ZIDOVUDINE. [Suspect]
     Active Substance: ZIDOVUDINE
     Dosage: UNK
     Route: 064
  2. LAMIVUDINE. [Suspect]
     Active Substance: LAMIVUDINE
     Dosage: UNK
     Route: 064

REACTIONS (8)
  - Congenital pulmonary valve atresia [Unknown]
  - Wolff-Parkinson-White syndrome [Unknown]
  - Foetal exposure during pregnancy [Unknown]
  - Patent ductus arteriosus [Unknown]
  - Tricuspid valve stenosis [Unknown]
  - Ebstein^s anomaly [Unknown]
  - Truncus arteriosus persistent [Unknown]
  - Ventricular hypoplasia [Unknown]
